FAERS Safety Report 10184712 (Version 1)
Quarter: 2014Q2

REPORT INFORMATION
  Report Type: Spontaneous
  Country: US (occurrence: None)
  Receive Date: 20140519
  Receipt Date: 20140519
  Transmission Date: 20141212
  Serious: Yes (Other)
  Sender: FDA-Public Use
  Company Number: 2339126

PATIENT
  Age: 52 Year
  Sex: Male

DRUGS (6)
  1. CYTARABINE [Suspect]
     Indication: ACUTE MYELOID LEUKAEMIA
  2. DAUNORUBICIN [Suspect]
     Indication: ACUTE MYELOID LEUKAEMIA
  3. VANCOMYCIN [Concomitant]
  4. CEFEPIME [Concomitant]
  5. CLINDAMYCIN [Concomitant]
  6. PIPERACILLIN/TAZOBACTAM [Concomitant]

REACTIONS (13)
  - Systemic inflammatory response syndrome [None]
  - Pancytopenia [None]
  - Pyrexia [None]
  - Chills [None]
  - Tachycardia [None]
  - Erythema [None]
  - Swelling [None]
  - Pain [None]
  - Pyomyositis [None]
  - Skin oedema [None]
  - Cellulitis [None]
  - Muscle necrosis [None]
  - Abscess [None]
